FAERS Safety Report 5719199-X (Version None)
Quarter: 2008Q2

REPORT INFORMATION
  Report Type: 
  Country: None (occurrence: None)
  Receive Date: 20080428
  Receipt Date: 20080417
  Transmission Date: 20081010
  Serious: Yes (Other)
  Sender: FDA-Public Use
  Company Number: CA-JNJFOC-20071200994

PATIENT
  Sex: Male
  Weight: 97 kg

DRUGS (8)
  1. REMICADE [Suspect]
     Indication: CROHN'S DISEASE
     Route: 042
  2. REMICADE [Suspect]
     Indication: ANKYLOSING SPONDYLITIS
     Route: 042
  3. IMURAN [Concomitant]
     Route: 048
  4. ATIVAN [Concomitant]
     Route: 048
  5. NORVASC [Concomitant]
     Route: 048
  6. ATENOLOL [Concomitant]
     Route: 048
  7. FOSAMAX [Concomitant]
     Route: 048
  8. VENTOLIN [Concomitant]
     Route: 055

REACTIONS (2)
  - ASTHMA [None]
  - LOWER RESPIRATORY TRACT INFECTION [None]
